FAERS Safety Report 12388081 (Version 1)
Quarter: 2016Q2

REPORT INFORMATION
  Report Type: Spontaneous
  Country: US (occurrence: US)
  Receive Date: 20160520
  Receipt Date: 20160520
  Transmission Date: 20160815
  Serious: Yes (Other)
  Sender: FDA-Public Use
  Company Number: US-BRISTOL-MYERS SQUIBB COMPANY-BMS-2016-039148

PATIENT
  Sex: Male

DRUGS (1)
  1. METFORMIN HYDROCHLORIDE. [Suspect]
     Active Substance: METFORMIN HYDROCHLORIDE
     Indication: PRODUCT USED FOR UNKNOWN INDICATION
     Dosage: UNK
     Route: 065

REACTIONS (7)
  - Agitation [Unknown]
  - Ventricular arrhythmia [Unknown]
  - Extracorporeal membrane oxygenation [Unknown]
  - Accidental exposure to product [Unknown]
  - Coma [Unknown]
  - Metabolic acidosis [Unknown]
  - Renal replacement therapy [Unknown]
